FAERS Safety Report 19514839 (Version 3)
Quarter: 2022Q2

REPORT INFORMATION
  Report Type: Report from Study
  Country: US (occurrence: US)
  Receive Date: 20210710
  Receipt Date: 20220530
  Transmission Date: 20220721
  Serious: Yes (Hospitalization, Other)
  Sender: FDA-Public Use
  Company Number: NVSC2021US148900

PATIENT
  Age: 65 Year
  Sex: Male

DRUGS (1)
  1. ENTRESTO [Suspect]
     Active Substance: SACUBITRIL\VALSARTAN
     Indication: Product used for unknown indication
     Dosage: 100 MG, BID (24/26 MG)
     Route: 048
     Dates: start: 20210531

REACTIONS (7)
  - Blood glucose decreased [Unknown]
  - Blood sodium decreased [Unknown]
  - Hypotension [Recovered/Resolved]
  - Postoperative wound infection [Unknown]
  - Impaired healing [Unknown]
  - Movement disorder [Unknown]
  - Mobility decreased [Unknown]

NARRATIVE: CASE EVENT DATE: 20210625
